FAERS Safety Report 7622380-6 (Version None)
Quarter: 2011Q3

REPORT INFORMATION
  Report Type: 
  Country: None (occurrence: None)
  Receive Date: 20110718
  Receipt Date: 20110718
  Transmission Date: 20111222
  Serious: No
  Sender: FDA-Public Use
  Company Number: None

PATIENT
  Age: 76 Year
  Sex: Female
  Weight: 51.7101 kg

DRUGS (1)
  1. BIAXIN [Suspect]
     Indication: ASTHMA
     Dosage: 500MG BID PO
     Route: 048
     Dates: start: 20110426

REACTIONS (2)
  - ANOSMIA [None]
  - AGEUSIA [None]
